FAERS Safety Report 6166351-8 (Version None)
Quarter: 2009Q2

REPORT INFORMATION
  Report Type: 
  Country: None (occurrence: None)
  Receive Date: 20090422
  Receipt Date: 20090422
  Transmission Date: 20091009
  Serious: No
  Sender: FDA-Public Use
  Company Number: None

PATIENT
  Sex: Female
  Weight: 55.45 kg

DRUGS (11)
  1. LISINOPRIL [Suspect]
     Dosage: 20MG TABLET 20 MG QD ORAL
     Route: 048
     Dates: start: 20090421, end: 20090421
  2. ADVAIR HFA [Concomitant]
  3. ALBUTEROL [Concomitant]
  4. ASPIRIN [Concomitant]
  5. CALCIUM [Concomitant]
  6. FOSAMAX [Concomitant]
  7. GLIPIZIDE [Concomitant]
  8. METAMUCIL [Concomitant]
  9. METFORMIN HCL [Concomitant]
  10. PRILOSEC [Concomitant]
  11. SIMVASTATIN [Concomitant]

REACTIONS (1)
  - COUGH [None]
